FAERS Safety Report 24311470 (Version 1)
Quarter: 2024Q3

REPORT INFORMATION
  Report Type: Spontaneous
  Country: US (occurrence: US)
  Receive Date: 20240912
  Receipt Date: 20240912
  Transmission Date: 20241016
  Serious: No
  Sender: ALVOGEN
  Company Number: None

PATIENT

DRUGS (1)
  1. LISDEXAMFETAMINE DIMESYLATE [Suspect]
     Active Substance: LISDEXAMFETAMINE DIMESYLATE
     Indication: Product used for unknown indication

REACTIONS (9)
  - Disease recurrence [Unknown]
  - Feeling abnormal [Unknown]
  - Flushing [Unknown]
  - Quality of life decreased [Unknown]
  - Hyperhidrosis [Unknown]
  - Headache [Unknown]
  - Vomiting [Unknown]
  - Product availability issue [Unknown]
  - Product quality issue [Unknown]
